FAERS Safety Report 18740134 (Version 1)
Quarter: 2021Q1

REPORT INFORMATION
  Report Type: Spontaneous
  Country: US (occurrence: US)
  Receive Date: 20210114
  Receipt Date: 20210114
  Transmission Date: 20210419
  Serious: Yes (Hospitalization)
  Sender: FDA-Public Use
  Company Number: None

PATIENT
  Age: 64 Year
  Sex: Female

DRUGS (12)
  1. LEUCOVORIN. [Suspect]
     Active Substance: LEUCOVORIN
  2. CAPECITABINE. [Concomitant]
     Active Substance: CAPECITABINE
  3. IRINOTECAN [Suspect]
     Active Substance: IRINOTECAN
     Indication: PANCREATIC CARCINOMA
  4. VITAMELTS VITAMIN D [Concomitant]
  5. CAPECITABINE. [Concomitant]
     Active Substance: CAPECITABINE
  6. ASPIRIN 81 [Concomitant]
     Active Substance: ASPIRIN
  7. METOPROLOL SUCCINATE ER [Concomitant]
     Active Substance: METOPROLOL SUCCINATE
  8. METFORMIN HCL [Concomitant]
     Active Substance: METFORMIN HYDROCHLORIDE
  9. GEMCITABINE. [Concomitant]
     Active Substance: GEMCITABINE
  10. OXALIPLATIN. [Suspect]
     Active Substance: OXALIPLATIN
  11. FLUOROURACIL. [Suspect]
     Active Substance: FLUOROURACIL
     Indication: PANCREATIC CARCINOMA
  12. PANTOPRAZOLE SODIUM. [Concomitant]
     Active Substance: PANTOPRAZOLE SODIUM

REACTIONS (1)
  - Gastric infection [None]

NARRATIVE: CASE EVENT DATE: 20201101
